FAERS Safety Report 10501410 (Version 1)
Quarter: 2014Q4

REPORT INFORMATION
  Report Type: Spontaneous
  Country: FR (occurrence: FR)
  Receive Date: 20141007
  Receipt Date: 20141007
  Transmission Date: 20150528
  Serious: Yes (Hospitalization)
  Sender: FDA-Public Use
  Company Number: FR-MYLANLABS-2014S1009466

PATIENT

DRUGS (6)
  1. RABBIT VACCINIA EXTRACT [Suspect]
     Active Substance: RABBIT
     Indication: IMMUNOSUPPRESSION
     Dosage: UNK
  2. MYCOPHENOLATE [Suspect]
     Active Substance: MYCOPHENOLIC ACID
     Indication: IMMUNOSUPPRESSION
     Dosage: 3 G,QD
  3. AZATHIOPRINE. [Suspect]
     Active Substance: AZATHIOPRINE
     Indication: IMMUNOSUPPRESSION
     Dosage: 125 MG,QD
  4. CYCLOSPORINE. [Suspect]
     Active Substance: CYCLOSPORINE
     Indication: IMMUNOSUPPRESSION
     Dosage: UNK
  5. PREDNISONE. [Suspect]
     Active Substance: PREDNISONE
     Indication: IMMUNOSUPPRESSION
     Dosage: 10 MG,UNK
  6. PREDNISONE. [Suspect]
     Active Substance: PREDNISONE
     Dosage: 5 MG,UNK

REACTIONS (2)
  - Gastroenteritis viral [Unknown]
  - Complications of transplanted kidney [Unknown]
